FAERS Safety Report 7488555-4 (Version None)
Quarter: 2011Q2

REPORT INFORMATION
  Report Type: 
  Country: None (occurrence: None)
  Receive Date: 20110518
  Receipt Date: 20110509
  Transmission Date: 20111010
  Serious: Yes (Hospitalization, Other)
  Sender: FDA-Public Use
  Company Number: US-ASTRAZENECA-2011SE23327

PATIENT
  Age: 56 Year
  Sex: Male

DRUGS (2)
  1. NEXIUM [Suspect]
     Route: 048
  2. PREVACID [Concomitant]

REACTIONS (5)
  - BURNING SENSATION [None]
  - OPEN WOUND [None]
  - INAPPROPRIATE SCHEDULE OF DRUG ADMINISTRATION [None]
  - NERVE COMPRESSION [None]
  - WRIST SURGERY [None]
